FAERS Safety Report 20930013 (Version 1)
Quarter: 2022Q2

REPORT INFORMATION
  Report Type: Spontaneous
  Country: US (occurrence: US)
  Receive Date: 20220608
  Receipt Date: 20220608
  Transmission Date: 20220721
  Serious: No
  Sender: FDA-Public Use
  Company Number: US-ORGANON-O2206USA000296

PATIENT
  Sex: Male

DRUGS (4)
  1. PREGNYL [Suspect]
     Active Substance: CHORIOGONADOTROPIN ALFA
     Indication: Endocrine disorder
     Dosage: MIX WITH 10 ML DILUENT, THEN INJECT 1000 IU ONCE PER WEEK  (10000 UNIT MDV60)
     Route: 058
  2. WATER FOR INJECTION [Suspect]
     Active Substance: WATER
     Dosage: MIX WITH 10 ML DILUENT, THEN INJECT 1000 IU ONCE PER WEEK
     Route: 058
  3. GONADOTROPIN, CHORIONIC [Concomitant]
     Active Substance: CHORIOGONADOTROPIN ALFA
     Dosage: UNK
  4. ADVIL [Concomitant]
     Active Substance: IBUPROFEN
     Dosage: UNK

REACTIONS (2)
  - Product dose omission issue [Unknown]
  - Product availability issue [Unknown]
